FAERS Safety Report 24745950 (Version 1)
Quarter: 2024Q4

REPORT INFORMATION
  Report Type: Spontaneous
  Country: US (occurrence: US)
  Receive Date: 20241218
  Receipt Date: 20241218
  Transmission Date: 20250115
  Serious: Yes (Hospitalization)
  Sender: LAURUS LABS LIMITED
  Company Number: US-LAURUS LABS LIMITED-2024LAU000080

PATIENT
  Age: 79 Year
  Sex: Male

DRUGS (1)
  1. SACUBITRIL\VALSARTAN [Suspect]
     Active Substance: SACUBITRIL\VALSARTAN
     Indication: Heart failure with preserved ejection fraction
     Dosage: UNK
     Route: 065

REACTIONS (1)
  - Delirium [Recovered/Resolved]
